FAERS Safety Report 9779999 (Version 1)
Quarter: 2013Q4

REPORT INFORMATION
  Report Type: Spontaneous
  Country: US (occurrence: US)
  Receive Date: 20131223
  Receipt Date: 20131223
  Transmission Date: 20140711
  Serious: Yes (Death)
  Sender: FDA-Public Use
  Company Number: US-GLAXOSMITHKLINE-A1021467A

PATIENT
  Age: 66 Year
  Sex: Male

DRUGS (1)
  1. PROMACTA [Suspect]
     Indication: THROMBOCYTOPENIA
     Dosage: 50MG UNKNOWN
     Dates: start: 20120514

REACTIONS (2)
  - Platelet count decreased [Unknown]
  - Death [Fatal]
